FAERS Safety Report 9658576 (Version 2)
Quarter: 2013Q4

REPORT INFORMATION
  Report Type: Spontaneous
  Country: US (occurrence: US)
  Receive Date: 20131030
  Receipt Date: 20131030
  Transmission Date: 20140711
  Serious: No
  Sender: FDA-Public Use
  Company Number: US-PURDUE-USA-2010-0056486

PATIENT
  Age: 60 Year
  Sex: Female
  Weight: 87.98 kg

DRUGS (4)
  1. OXYCONTIN (NDA 22-272) [Suspect]
     Indication: PAIN
     Dosage: 120 MG, OF 40MG 60MG AND 80MG EACH FOUR TIMES DAILY
     Dates: end: 20101005
  2. OXYCODONE HYDROCHLORIDE (SIMILAR TO NDA 22-272) [Concomitant]
     Indication: PAIN
     Dosage: 360 MG, DAILY
     Dates: start: 20070926
  3. XANAX [Concomitant]
     Indication: SLEEP DISORDER
     Dosage: 1MG, ONE OR TWO AT BEDTIME
     Dates: start: 20091105
  4. LUNESTA [Concomitant]
     Indication: INSOMNIA
     Dosage: 3 MG, HS
     Dates: start: 20071226

REACTIONS (3)
  - Medication residue present [Recovered/Resolved]
  - Pain [Not Recovered/Not Resolved]
  - Inadequate analgesia [Unknown]
